FAERS Safety Report 25997655 (Version 2)
Quarter: 2025Q4

REPORT INFORMATION
  Report Type: Spontaneous
  Country: BR (occurrence: BR)
  Receive Date: 20251104
  Receipt Date: 20251113
  Transmission Date: 20260117
  Serious: Yes (Other)
  Sender: TAKEDA
  Company Number: BR-TAKEDA-2025TUS096410

PATIENT
  Age: 43 Year
  Sex: Female

DRUGS (2)
  1. DEXILANT [Suspect]
     Active Substance: DEXLANSOPRAZOLE
     Indication: Reflux laryngitis
     Dosage: UNK
  2. DEXILANT [Suspect]
     Active Substance: DEXLANSOPRAZOLE
     Indication: Gastrooesophageal reflux disease

REACTIONS (11)
  - Anal candidiasis [Unknown]
  - Dermatitis [Unknown]
  - Anal pruritus [Unknown]
  - Proctalgia [Unknown]
  - Emotional distress [Unknown]
  - Discomfort [Unknown]
  - Anorectal discomfort [Unknown]
  - Drug ineffective for unapproved indication [Unknown]
  - Dermatitis atopic [Unknown]
  - Pain [Unknown]
  - Constipation [Unknown]
